FAERS Safety Report 5620986-7 (Version None)
Quarter: 2008Q1

REPORT INFORMATION
  Report Type: 
  Country: None (occurrence: None)
  Receive Date: 20080208
  Receipt Date: 20080130
  Transmission Date: 20080703
  Serious: Yes (Other)
  Sender: FDA-Public Use
  Company Number: US-PFIZER INC-2008009945

PATIENT
  Sex: Female
  Weight: 51.3 kg

DRUGS (4)
  1. GEODON [Suspect]
     Dosage: DAILY DOSE:160MG-FREQ:DAILY
     Route: 048
  2. COGENTIN [Suspect]
     Dates: start: 20071226, end: 20071227
  3. SERTRALINE [Concomitant]
  4. ALPRAZOLAM [Concomitant]

REACTIONS (5)
  - COGNITIVE DISORDER [None]
  - DELUSION [None]
  - PARKINSONISM [None]
  - SOMNOLENCE [None]
  - TREMOR [None]
